FAERS Safety Report 8161450-3 (Version None)
Quarter: 2012Q1

REPORT INFORMATION
  Report Type: 
  Country: None (occurrence: None)
  Receive Date: 20120222
  Receipt Date: 20120222
  Transmission Date: 20120608
  Serious: Yes (Hospitalization)
  Sender: FDA-Public Use
  Company Number: None

PATIENT
  Sex: Male
  Weight: 99 kg

DRUGS (12)
  1. HYZAAR [Concomitant]
  2. ACETAMINOPHEN [Concomitant]
  3. VIAGRA [Concomitant]
  4. CARBOPLATIN [Suspect]
     Indication: OESOPHAGEAL CARCINOMA
     Dosage: 900 MG IV
     Route: 042
     Dates: start: 20120119
  5. CARBOPLATIN [Suspect]
     Indication: OESOPHAGEAL CARCINOMA
     Dosage: 900 MG IV
     Route: 042
     Dates: start: 20120209
  6. LAPATINIB [Suspect]
     Indication: OESOPHAGEAL CARCINOMA
     Dosage: 750 MG DAILY ORAL
     Route: 048
     Dates: start: 20120119, end: 20120217
  7. COMPAZINE [Concomitant]
  8. MULTI-VITAMIN [Concomitant]
  9. PACLITAXEL [Suspect]
     Indication: OESOPHAGEAL CARCINOMA
     Dosage: 367 MG IV
     Route: 042
     Dates: start: 20120209
  10. PACLITAXEL [Suspect]
     Indication: OESOPHAGEAL CARCINOMA
     Dosage: 367 MG IV
     Route: 042
     Dates: start: 20120119
  11. FLEXERIL [Concomitant]
  12. NORVASC [Concomitant]

REACTIONS (2)
  - DEHYDRATION [None]
  - DIARRHOEA [None]
